FAERS Safety Report 8611326-X (Version None)
Quarter: 2012Q3

REPORT INFORMATION
  Report Type: 
  Country: None (occurrence: None)
  Receive Date: 20120822
  Receipt Date: 20120816
  Transmission Date: 20120928
  Serious: Yes (Hospitalization)
  Sender: FDA-Public Use
  Company Number: FR-EISAI INC-E3810-05812-SPO-FR

PATIENT
  Sex: Male

DRUGS (10)
  1. RAMIPRIL [Suspect]
     Route: 048
     Dates: start: 20120604
  2. ATORVASTATIN [Concomitant]
     Route: 065
  3. LANTUS [Concomitant]
     Route: 065
  4. COSOPT [Concomitant]
     Route: 065
  5. GLUCOPHAGE [Concomitant]
     Route: 065
  6. NOVORAPID [Concomitant]
     Route: 065
  7. PIPERACILLINE PANPHARMA [Suspect]
     Indication: ANTIBIOTIC PROPHYLAXIS
     Route: 042
     Dates: start: 20120601
  8. ASPIRIN [Concomitant]
     Route: 048
     Dates: end: 20120705
  9. ASPIRIN [Concomitant]
     Route: 048
     Dates: start: 20120725
  10. RABEPRAZOLE SODIUM [Suspect]
     Route: 048
     Dates: start: 20120606

REACTIONS (1)
  - NEUTROPENIA [None]
